FAERS Safety Report 8258875-4 (Version None)
Quarter: 2012Q2

REPORT INFORMATION
  Report Type: 
  Country: None (occurrence: None)
  Receive Date: 20120404
  Receipt Date: 20120328
  Transmission Date: 20120825
  Serious: Yes (Hospitalization)
  Sender: FDA-Public Use
  Company Number: DE-UCBSA-052524

PATIENT
  Sex: Female
  Weight: 89 kg

DRUGS (7)
  1. PREDNISOLONE [Concomitant]
     Indication: RHEUMATOID ARTHRITIS
     Route: 048
     Dates: start: 20100731
  2. FALITHROM [Concomitant]
     Indication: THROMBOSIS
     Dosage: 3 MG ACCORDING TO QUICK'S VALUE
     Route: 048
     Dates: start: 20100818
  3. TILIDINE [Concomitant]
     Indication: PAIN
     Route: 048
     Dates: start: 20100719
  4. CERTOLIZUMAB PEGOL [Suspect]
     Indication: RHEUMATOID ARTHRITIS
     Dosage: 200 MG, NO. OF DOSES RECEIVED 6
     Route: 058
     Dates: start: 20110713, end: 20120104
  5. LEFLUNOMIDE [Concomitant]
     Indication: RHEUMATOID ARTHRITIS
     Route: 048
     Dates: start: 20100824
  6. IBUPROFEN [Concomitant]
     Indication: RHEUMATOID ARTHRITIS
     Route: 048
  7. ALENDRONIC ACID [Concomitant]
     Indication: OSTEOPOROSIS
     Dosage: 70 MG PER WEEK
     Route: 048
     Dates: start: 20100719

REACTIONS (1)
  - ABSCESS [None]
